FAERS Safety Report 17647642 (Version 2)
Quarter: 2020Q2

REPORT INFORMATION
  Report Type: Report from Study
  Country: US (occurrence: US)
  Receive Date: 20200408
  Receipt Date: 20200413
  Transmission Date: 20200713
  Serious: Yes (Hospitalization)
  Sender: FDA-Public Use
  Company Number: US-ACTELION-A-NJ2019-199981

PATIENT
  Sex: Male
  Weight: 90.7 kg

DRUGS (3)
  1. OPSUMIT [Suspect]
     Active Substance: MACITENTAN
     Indication: PULMONARY ARTERIAL HYPERTENSION
     Dosage: 10 MG, QD
     Route: 048
  2. AMLODIPINE [Concomitant]
     Active Substance: AMLODIPINE BESYLATE
  3. ELIQUIS [Concomitant]
     Active Substance: APIXABAN

REACTIONS (10)
  - Renal impairment [Recovered/Resolved]
  - Nervousness [Unknown]
  - Cardiac failure congestive [Unknown]
  - Anaemia [Unknown]
  - Internal haemorrhage [Recovered/Resolved]
  - Chronic obstructive pulmonary disease [Unknown]
  - Asthenia [Unknown]
  - Dyspnoea [Unknown]
  - Living in residential institution [Unknown]
  - Blood count abnormal [Unknown]

NARRATIVE: CASE EVENT DATE: 2019
